FAERS Safety Report 8513886-6 (Version None)
Quarter: 2012Q3

REPORT INFORMATION
  Report Type: 
  Country: None (occurrence: None)
  Receive Date: 20120717
  Receipt Date: 20120712
  Transmission Date: 20120928
  Serious: Yes (Other)
  Sender: FDA-Public Use
  Company Number: US-BAYER-2012-070606

PATIENT
  Age: 42 Year
  Sex: Female

DRUGS (11)
  1. YASMIN [Suspect]
     Indication: CONTRACEPTION
  2. METRONIDAZOLE [Concomitant]
     Dosage: 500 MG, UNK
  3. LEVOTHYROXINE SODIUM [Concomitant]
     Dosage: 25MCG, UNK
  4. CLARITIN [Concomitant]
     Dosage: 10 MG TABLET ONE PILL ONCE A DAY
     Route: 048
     Dates: start: 20120112
  5. SYMBICORT [Concomitant]
     Dosage: 160-4.5MCG
  6. MOTRIN [Concomitant]
     Dosage: 400 MG, BID
  7. DROSPIRENONE AND ETHINYL ESTRADIOL [Suspect]
  8. ACYCLOVIR [Concomitant]
     Dosage: 800 MG, UNK
  9. METOCLOPRAMIDE [Concomitant]
     Dosage: 10 MG, UNK
  10. YAZ [Suspect]
  11. DROSPIRENONE AND ETHINYL ESTRADIOL [Suspect]

REACTIONS (1)
  - DEEP VEIN THROMBOSIS [None]
